FAERS Safety Report 14568224 (Version 1)
Quarter: 2018Q1

REPORT INFORMATION
  Report Type: Spontaneous
  Country: US (occurrence: US)
  Receive Date: 20180223
  Receipt Date: 20180223
  Transmission Date: 20180509
  Serious: Yes (Other)
  Sender: FDA-Public Use
  Company Number: US-NAPPMUNDI-USA-2018-0142762

PATIENT
  Sex: Female

DRUGS (1)
  1. MORPHINE SULFATE EXTENDED-RELEASE TABLETS (RHODES 74-769, 74-862) [Suspect]
     Active Substance: MORPHINE SULFATE
     Indication: PAIN
     Dosage: 15 MG, BID
     Route: 048

REACTIONS (4)
  - Lung neoplasm malignant [Unknown]
  - Pleural neoplasm [Unknown]
  - Exposure to chemical pollution [Unknown]
  - Painful respiration [Unknown]

NARRATIVE: CASE EVENT DATE: 201509
